FAERS Safety Report 15170881 (Version 1)
Quarter: 2018Q3

REPORT INFORMATION
  Report Type: Spontaneous
  Country: US (occurrence: US)
  Receive Date: 20180622
  Receipt Date: 20180622
  Transmission Date: 20181010
  Serious: No
  Sender: FDA-Public Use
  Company Number: None

PATIENT
  Age: 60 Year
  Sex: Female

DRUGS (1)
  1. COSENTYX [Suspect]
     Active Substance: SECUKINUMAB
     Indication: PSORIATIC ARTHROPATHY

REACTIONS (4)
  - Arthralgia [None]
  - Psoriasis [None]
  - Insurance issue [None]
  - Drug dose omission [None]

NARRATIVE: CASE EVENT DATE: 20180420
